FAERS Safety Report 6579807-0 (Version None)
Quarter: 2010Q1

REPORT INFORMATION
  Report Type: 
  Country: None (occurrence: None)
  Receive Date: 20100212
  Receipt Date: 20100205
  Transmission Date: 20100710
  Serious: Yes (Hospitalization)
  Sender: FDA-Public Use
  Company Number: GB-ROCHE-684244

PATIENT
  Age: 60 Year
  Sex: Male

DRUGS (9)
  1. CEFTRIAXONE [Suspect]
     Indication: WOUND INFECTION
     Dosage: DRUG WITHDRAWN
     Route: 042
     Dates: start: 20091129, end: 20091130
  2. ADCAL D3 [Concomitant]
     Route: 048
  3. BUMETANIDE [Concomitant]
     Route: 048
  4. MULTIVITAMIN NOS [Concomitant]
     Dosage: REPORTED DRUG: MULTIVITAMIN
     Route: 048
  5. OMEPRAZOLE [Concomitant]
     Route: 048
  6. PARACETAMOL [Concomitant]
     Route: 048
  7. RAMIPRIL [Concomitant]
     Route: 048
  8. SPIRONOLACTONE [Concomitant]
     Route: 048
  9. VITAMIN B COMPLEX CAP [Concomitant]
     Dosage: REPORTED DRUG: VITAMIN B COMPOUND STRONG
     Route: 048

REACTIONS (4)
  - CHEST DISCOMFORT [None]
  - CHILLS [None]
  - FEELING COLD [None]
  - PYREXIA [None]
